FAERS Safety Report 6621911-2 (Version None)
Quarter: 2010Q1

REPORT INFORMATION
  Report Type: 
  Country: None (occurrence: None)
  Receive Date: 20100303
  Receipt Date: 20100223
  Transmission Date: 20100710
  Serious: Yes (Hospitalization)
  Sender: FDA-Public Use
  Company Number: CIP10000379

PATIENT
  Age: 71 Year
  Sex: Female

DRUGS (3)
  1. ACTONEL [Suspect]
     Dosage: 35 MG ONCE WEEKLY, ORAL; 35 MG, 1/WEEK
     Route: 048
     Dates: start: 20070101, end: 20091201
  2. ACTONEL [Suspect]
     Dosage: 35 MG ONCE WEEKLY, ORAL; 35 MG, 1/WEEK
     Route: 048
     Dates: start: 20091201
  3. NEXIUM [Concomitant]

REACTIONS (2)
  - CARDIAC DISORDER [None]
  - CONDUCTION DISORDER [None]
